FAERS Safety Report 4816868-0 (Version None)
Quarter: 2005Q4

REPORT INFORMATION
  Report Type: 
  Country: None (occurrence: None)
  Receive Date: 20051031
  Receipt Date: 20051031
  Transmission Date: 20060501
  Serious: Yes (Hospitalization)
  Sender: FDA-Public Use
  Company Number: None

PATIENT
  Age: 59 Year
  Sex: Male

DRUGS (7)
  1. FOSINOPRIL SODIUM [Suspect]
     Indication: HYPERTENSION
     Dosage: 40 MG QD
     Dates: start: 20031230
  2. MAXZIDE [Suspect]
     Indication: HYPERTENSION
     Dosage: 1/2 TAB QD
     Dates: start: 20050627
  3. ZOCOR [Concomitant]
  4. CLONIDINE [Concomitant]
  5. PLAVIX [Concomitant]
  6. OMEPRAZOLE [Concomitant]
  7. NITROGLYCERIN [Concomitant]

REACTIONS (2)
  - HYPERKALAEMIA [None]
  - RENAL FAILURE ACUTE [None]
